FAERS Safety Report 15534760 (Version 4)
Quarter: 2025Q3

REPORT INFORMATION
  Report Type: Spontaneous
  Country: EU (occurrence: EU)
  Receive Date: 20181022
  Receipt Date: 20250717
  Transmission Date: 20251021
  Serious: Yes (Life-Threatening, Hospitalization, Other)
  Sender: AUROBINDO
  Company Number: EU-AUROBINDO-AUR-APL-2018-050819

PATIENT
  Age: 34 Year
  Sex: Female

DRUGS (7)
  1. FLUCONAZOLE [Suspect]
     Active Substance: FLUCONAZOLE
     Indication: Antibiotic therapy
     Route: 065
  2. MEROPENEM [Suspect]
     Active Substance: MEROPENEM
     Indication: Antibiotic therapy
     Route: 042
  3. CEFEPIME [Suspect]
     Active Substance: CEFEPIME HYDROCHLORIDE
     Indication: Antibiotic therapy
     Route: 065
  4. TEICOPLANIN [Suspect]
     Active Substance: TEICOPLANIN
     Indication: Antibiotic therapy
     Route: 065
  5. TIGECYCLINE [Suspect]
     Active Substance: TIGECYCLINE
     Indication: Antibiotic therapy
     Route: 065
  6. METRONIDAZOLE [Suspect]
     Active Substance: METRONIDAZOLE
     Indication: Antibiotic therapy
     Route: 065
  7. CASPOFUNGIN ACETATE [Suspect]
     Active Substance: CASPOFUNGIN ACETATE
     Indication: Antibiotic therapy
     Route: 065

REACTIONS (8)
  - Klebsiella infection [Recovered/Resolved]
  - Sepsis [Recovering/Resolving]
  - Subdiaphragmatic abscess [Recovered/Resolved]
  - Postoperative wound infection [Recovered/Resolved]
  - Purulent discharge [Recovered/Resolved]
  - Dehiscence [Recovered/Resolved]
  - Pyrexia [Recovered/Resolved]
  - Neutropenia [Unknown]
